FAERS Safety Report 13143834 (Version 2)
Quarter: 2017Q1

REPORT INFORMATION
  Report Type: Report from Study
  Country: JP (occurrence: JP)
  Receive Date: 20170124
  Receipt Date: 20170224
  Transmission Date: 20170428
  Serious: Yes (Death, Life-Threatening, Hospitalization, Other)
  Sender: FDA-Public Use
  Company Number: JP-009507513-1609JPN012078

PATIENT
  Age: 74 Year
  Sex: Female
  Weight: 62 kg

DRUGS (14)
  1. CUBICIN [Suspect]
     Active Substance: DAPTOMYCIN
     Indication: SEPSIS
     Dosage: 5.7 MG/KG, UNK
     Route: 041
     Dates: start: 20160522, end: 20160612
  2. MOSAPRIDE CITRATE [Concomitant]
     Active Substance: MOSAPRIDE CITRATE
     Indication: PROPHYLAXIS
     Dosage: 2.5 MG, TID
     Route: 048
     Dates: start: 20160519, end: 20160612
  3. MANNITOL. [Concomitant]
     Active Substance: MANNITOL
     Indication: PROPHYLAXIS
     Dosage: 250 ML, QD
     Route: 051
     Dates: end: 20160607
  4. NOREPINEPHRINE [Concomitant]
     Active Substance: NOREPINEPHRINE\NOREPINEPHRINE BITARTRATE
     Indication: SEPSIS
     Dosage: 18 MG, QD
     Route: 051
     Dates: start: 20160510, end: 20160612
  5. WARFARIN [Concomitant]
     Active Substance: WARFARIN
     Indication: HEART VALVE REPLACEMENT
     Dosage: 1 MG, QD
     Route: 048
     Dates: start: 20160521, end: 20160522
  6. DOBUPUM [Concomitant]
     Active Substance: DOBUTAMINE HYDROCHLORIDE
     Indication: CARDIAC FAILURE
     Dosage: 225 MG, QD (VARIATIONS IN DOSE)
     Route: 051
     Dates: end: 20160612
  7. BIOFERMIN R [Concomitant]
     Active Substance: BACILLUS SUBTILIS\LACTOBACILLUS ACIDOPHILUS\STREPTOCOCCUS FAECAIS
     Indication: PROPHYLAXIS
     Dosage: 6 MG, TID
     Route: 048
     Dates: end: 20160612
  8. BISOPROLOL FUMARATE. [Concomitant]
     Active Substance: BISOPROLOL FUMARATE
     Indication: PROPHYLAXIS
     Dosage: 1.2 MG, QD
     Route: 048
     Dates: start: 20160519, end: 20160528
  9. ANCARON [Concomitant]
     Active Substance: AMIODARONE HYDROCHLORIDE
     Indication: ARRHYTHMIA
     Dosage: 600 MG, QD
     Route: 051
     Dates: start: 20160519, end: 20160528
  10. OMEPRAZOLE. [Concomitant]
     Active Substance: OMEPRAZOLE
     Indication: PROPHYLAXIS
     Dosage: 40 MG, QD
     Route: 051
     Dates: start: 20160512, end: 20160612
  11. DAI-KENCHU-TO [Concomitant]
     Active Substance: MALTOSE
     Indication: PROPHYLAXIS
     Dosage: 5 G, TID
     Route: 048
     Dates: end: 20160612
  12. HERBAL NOS [Concomitant]
     Active Substance: HERBALS
     Indication: PROPHYLAXIS
     Dosage: 2.5 G, TID
     Route: 048
     Dates: end: 20160612
  13. VANCOMYCIN [Concomitant]
     Active Substance: VANCOMYCIN
     Indication: SEPSIS
     Dosage: 0.5 G, UNK
     Route: 041
     Dates: start: 20160517, end: 20160521
  14. MEROPENEM. [Concomitant]
     Active Substance: MEROPENEM
     Indication: SEPSIS
     Dosage: 0.5 G, TID
     Route: 051
     Dates: start: 20160517, end: 20160531

REACTIONS (3)
  - Multiple organ dysfunction syndrome [Fatal]
  - Intestinal ischaemia [Recovering/Resolving]
  - Drug ineffective [Unknown]

NARRATIVE: CASE EVENT DATE: 20160526
